FAERS Safety Report 7730497-0 (Version None)
Quarter: 2011Q3

REPORT INFORMATION
  Report Type: 
  Country: None (occurrence: None)
  Receive Date: 20110901
  Receipt Date: 20110901
  Transmission Date: 20111222
  Serious: Yes (Other)
  Sender: FDA-Public Use
  Company Number: None

PATIENT
  Age: 50 Year
  Sex: Female
  Weight: 63.05 kg

DRUGS (1)
  1. MINOCYCLINE HCL [Suspect]
     Indication: LYME DISEASE
     Dosage: FIRST 3 MONTHS 100MG 2X DAY: THEN CUT DOWN LAST 2 MONTHS TO 100 MG 1X DAY
     Dates: start: 20110202, end: 20110805

REACTIONS (5)
  - LUPUS-LIKE SYNDROME [None]
  - GAIT DISTURBANCE [None]
  - FATIGUE [None]
  - ARTHRALGIA [None]
  - MUSCULOSKELETAL STIFFNESS [None]
